FAERS Safety Report 10052663 (Version 1)
Quarter: 2014Q1

REPORT INFORMATION
  Report Type: Spontaneous
  Country: US (occurrence: None)
  Receive Date: 20140331
  Receipt Date: 20140331
  Transmission Date: 20141002
  Serious: Yes (Hospitalization)
  Sender: FDA-Public Use
  Company Number: US-RRD-14-00036

PATIENT
  Age: 41 Year
  Sex: Male

DRUGS (1)
  1. METHAMPHETAMINE [Suspect]
     Indication: PRODUCT USED FOR UNKNOWN INDICATION

REACTIONS (17)
  - Confusional state [None]
  - Agitation [None]
  - Loss of consciousness [None]
  - Hypoxia [None]
  - Haemodynamic instability [None]
  - Blood creatine phosphokinase MB increased [None]
  - Blood potassium increased [None]
  - Drug abuse [None]
  - Intestinal ischaemia [None]
  - Splenic infarction [None]
  - Thrombosis mesenteric vessel [None]
  - Necrosis [None]
  - Shock [None]
  - Multi-organ failure [None]
  - Renal failure acute [None]
  - Rhabdomyolysis [None]
  - Lactic acidosis [None]
